FAERS Safety Report 6210079-2 (Version None)
Quarter: 2009Q2

REPORT INFORMATION
  Report Type: 
  Country: None (occurrence: None)
  Receive Date: 20090601
  Receipt Date: 20090526
  Transmission Date: 20091009
  Serious: Yes (Other)
  Sender: FDA-Public Use
  Company Number: IL-ROCHE-634244

PATIENT
  Age: 31 Year
  Sex: Male

DRUGS (2)
  1. ROACCUTANE [Suspect]
     Indication: ACNE
     Route: 048
     Dates: start: 20051201
  2. ROACCUTANE [Suspect]
     Route: 048

REACTIONS (1)
  - FIBROMYALGIA [None]
